FAERS Safety Report 4711746-X (Version None)
Quarter: 2005Q3

REPORT INFORMATION
  Report Type: 
  Country: None (occurrence: None)
  Receive Date: 20050708
  Receipt Date: 20050708
  Transmission Date: 20060218
  Serious: Yes (Hospitalization)
  Sender: FDA-Public Use
  Company Number: None

PATIENT
  Age: 81 Year
  Sex: Male
  Weight: 77.7 kg

DRUGS (2)
  1. FUROSEMIDE [Suspect]
     Indication: CARDIAC FAILURE CONGESTIVE
     Dosage: 60 MG , 60 MG QD, INTRAVEN
     Route: 042
     Dates: start: 20050408, end: 20050420
  2. FUROSEMIDE [Suspect]
     Indication: OEDEMA
     Dosage: 60 MG , 60 MG QD, INTRAVEN
     Route: 042
     Dates: start: 20050408, end: 20050420

REACTIONS (1)
  - RASH [None]
